FAERS Safety Report 14563192 (Version 1)
Quarter: 2018Q1

REPORT INFORMATION
  Report Type: Spontaneous
  Country: US (occurrence: US)
  Receive Date: 20180222
  Receipt Date: 20180222
  Transmission Date: 20180509
  Serious: Yes (Other)
  Sender: FDA-Public Use
  Company Number: None

PATIENT
  Age: 57 Year
  Sex: Male

DRUGS (4)
  1. BENADRYL 50MG QPM [Concomitant]
  2. PROZAC 60MG QAM [Concomitant]
  3. TRILAFON [Suspect]
     Active Substance: PERPHENAZINE
     Route: 048
     Dates: start: 20180104, end: 20180111
  4. DEPAKOTE 500MG QAM, 1000MG QPM [Concomitant]

REACTIONS (3)
  - Dyskinesia [None]
  - Parkinsonian rest tremor [None]
  - Tremor [None]

NARRATIVE: CASE EVENT DATE: 20180111
